FAERS Safety Report 7083720-2 (Version None)
Quarter: 2010Q4

REPORT INFORMATION
  Report Type: 
  Country: None (occurrence: None)
  Receive Date: 20101103
  Receipt Date: 20101103
  Transmission Date: 20110411
  Serious: Yes (Hospitalization)
  Sender: FDA-Public Use
  Company Number: None

PATIENT
  Age: 72 Year
  Sex: Male
  Weight: 80.5 kg

DRUGS (13)
  1. DECITABINE 0.2 MG / KG SUB-Q INJECTION 3X PER WEEK [Suspect]
     Indication: MYELODYSPLASTIC SYNDROME
     Dosage: DECITABINE .2 MG/KG SUB-Q
     Route: 058
  2. DECITABINE 0.2 MG / KG SUB-Q INJECTION 3X PER WEEK [Suspect]
     Indication: REFRACTORY ANAEMIA WITH AN EXCESS OF BLASTS
     Dosage: DECITABINE .2 MG/KG SUB-Q
     Route: 058
  3. ACYCLOVIR [Concomitant]
  4. CIPRO [Concomitant]
  5. DESFERAL INFUSION [Concomitant]
  6. PROTEGRA [Concomitant]
  7. AVODART [Concomitant]
  8. TAMSULOSIN [Concomitant]
  9. NEXIUM [Concomitant]
  10. LISINOPRIL [Concomitant]
  11. LASIX [Concomitant]
  12. POSACONAZOLE [Concomitant]
  13. K-DUR [Concomitant]

REACTIONS (4)
  - HAEMATURIA [None]
  - HEPATIC ENZYME INCREASED [None]
  - PNEUMONIA [None]
  - RASH PRURITIC [None]
